FAERS Safety Report 9717075 (Version 1)
Quarter: 2013Q4

REPORT INFORMATION
  Report Type: Spontaneous
  Country: US (occurrence: None)
  Receive Date: 20131125
  Receipt Date: 20131125
  Transmission Date: 20140711
  Serious: Yes (Hospitalization)
  Sender: FDA-Public Use
  Company Number: UTC-040857

PATIENT
  Age: 51 Year
  Sex: Female

DRUGS (2)
  1. REMODULIN (INJECTION FOR INFUSION) (TREPROSTINIL SODIUM) [Suspect]
     Indication: PRODUCT USED FOR UNKNOWN INDICATION
     Route: 058
  2. LETAIRIS [Suspect]
     Indication: PRODUCT USED FOR UNKNOWN INDICATION
     Dates: start: 20081013

REACTIONS (4)
  - Anaemia [None]
  - Dyspnoea [None]
  - Fatigue [None]
  - Dizziness [None]
